FAERS Safety Report 10260862 (Version 2)
Quarter: 2014Q3

REPORT INFORMATION
  Report Type: Spontaneous
  Country: BR (occurrence: BR)
  Receive Date: 20140626
  Receipt Date: 20140704
  Transmission Date: 20150326
  Serious: Yes (Hospitalization)
  Sender: FDA-Public Use
  Company Number: BR-ASTRAZENECA-2014SE45663

PATIENT
  Age: 87 Year
  Sex: Female
  Weight: 56 kg

DRUGS (7)
  1. EXODUS [Concomitant]
     Active Substance: ESCITALOPRAM OXALATE
     Indication: DEMENTIA ALZHEIMER^S TYPE
     Route: 048
  2. BRILINTA [Suspect]
     Active Substance: TICAGRELOR
     Indication: CORONARY ARTERY OCCLUSION
     Route: 048
     Dates: start: 20130720
  3. GLIMEPIRIDE. [Concomitant]
     Active Substance: GLIMEPIRIDE
     Indication: DIABETES MELLITUS
     Route: 048
  4. ROSUVASTATIN [Suspect]
     Active Substance: ROSUVASTATIN
     Indication: BLOOD CHOLESTEROL INCREASED
     Route: 048
  5. LEXOTAN [Concomitant]
     Active Substance: BROMAZEPAM
     Indication: SLEEP DISORDER
     Route: 048
  6. DONEPEZIL [Concomitant]
     Active Substance: DONEPEZIL
     Indication: DEMENTIA ALZHEIMER^S TYPE
     Route: 048
  7. GALVUS MET (METFORMIN) [Suspect]
     Active Substance: METFORMIN HYDROCHLORIDE\VILDAGLIPTIN
     Indication: DIABETES MELLITUS
     Route: 048

REACTIONS (5)
  - Gait disturbance [Not Recovered/Not Resolved]
  - Tooth discolouration [Not Recovered/Not Resolved]
  - Memory impairment [Unknown]
  - Coronary artery occlusion [Recovered/Resolved]
  - Pain in extremity [Not Recovered/Not Resolved]

NARRATIVE: CASE EVENT DATE: 2013
